FAERS Safety Report 24665828 (Version 1)
Quarter: 2024Q4

REPORT INFORMATION
  Report Type: Spontaneous
  Country: US (occurrence: None)
  Receive Date: 20241126
  Receipt Date: 20241126
  Transmission Date: 20250114
  Serious: No
  Sender: Public
  Company Number: None

PATIENT
  Age: 96 Year
  Sex: Female
  Weight: 58.5 kg

DRUGS (18)
  1. ESTRADIOL [Suspect]
     Active Substance: ESTRADIOL
     Indication: Nocturia
     Route: 061
  2. AMLODIPINE [Concomitant]
     Active Substance: AMLODIPINE BESYLATE
  3. ATROPINE [Concomitant]
     Active Substance: ATROPINE
  4. BRIMONIDINE [Concomitant]
     Active Substance: BRIMONIDINE TARTRATE
  5. CELECOXIB [Concomitant]
     Active Substance: CELECOXIB
  6. CITALOPRAM [Concomitant]
     Active Substance: CITALOPRAM
  7. DICLOFENAC [Concomitant]
     Active Substance: DICLOFENAC
  8. DORZOLAMIDE [Concomitant]
     Active Substance: DORZOLAMIDE
  9. FLUOROMETHOLONE [Concomitant]
     Active Substance: FLUOROMETHOLONE
  10. FLUTICASONE [Concomitant]
     Active Substance: FLUTICASONE
  11. LATANOPROST [Concomitant]
     Active Substance: LATANOPROST
  12. LIDOCAINE [Concomitant]
     Active Substance: LIDOCAINE
  13. CLARITIN [Concomitant]
     Active Substance: LORATADINE
  14. MYRBETRIQ [Concomitant]
     Active Substance: MIRABEGRON
  15. neomycin polymycin dexameth [Concomitant]
  16. VITAMIN D [Concomitant]
     Active Substance: VITAMIN D NOS
  17. CRANBERRY [Concomitant]
     Active Substance: CRANBERRY
  18. TYLENOL [Concomitant]
     Active Substance: ACETAMINOPHEN

REACTIONS (1)
  - Burning sensation [None]

NARRATIVE: CASE EVENT DATE: 20241126
